FAERS Safety Report 8336234-3 (Version None)
Quarter: 2012Q2

REPORT INFORMATION
  Report Type: 
  Country: None (occurrence: None)
  Receive Date: 20120504
  Receipt Date: 20120426
  Transmission Date: 20120825
  Serious: Yes (Hospitalization)
  Sender: FDA-Public Use
  Company Number: US-US-EMD SERONO, INC.-7129121

PATIENT
  Sex: Male

DRUGS (2)
  1. REBIF [Suspect]
     Indication: PRODUCT USED FOR UNKNOWN INDICATION
     Route: 058
     Dates: start: 20110314, end: 20110813
  2. REBIF [Suspect]
     Route: 058
     Dates: start: 20120223

REACTIONS (5)
  - FEELING JITTERY [None]
  - HYPERHIDROSIS [None]
  - DYSPHEMIA [None]
  - DYSURIA [None]
  - MUSCULAR WEAKNESS [None]
